FAERS Safety Report 9141058 (Version 1)
Quarter: 2013Q1

REPORT INFORMATION
  Report Type: Spontaneous
  Country: TN (occurrence: TN)
  Receive Date: 20130305
  Receipt Date: 20130305
  Transmission Date: 20140127
  Serious: Yes (Death, Other)
  Sender: FDA-Public Use
  Company Number: TN-BAXTER-2013BAX008090

PATIENT
  Age: 24 Year
  Sex: Male

DRUGS (15)
  1. HOLOXAN [Suspect]
     Indication: SCROTAL MASS
     Dosage: 3 CYCLES
  2. HOLOXAN [Suspect]
     Indication: LYMPHADENOPATHY
  3. HOLOXAN [Suspect]
     Indication: PULMONARY MASS
  4. ADRIAMYCIN [Suspect]
     Indication: SCROTAL MASS
     Dosage: 3 CYCLES
  5. ADRIAMYCIN [Suspect]
     Indication: LYMPHADENOPATHY
  6. ADRIAMYCIN [Suspect]
     Indication: PULMONARY MASS
  7. GEMCITABINE [Suspect]
     Indication: SCROTAL MASS
  8. GEMCITABINE [Suspect]
     Indication: LYMPHADENOPATHY
  9. GEMCITABINE [Suspect]
     Indication: PULMONARY MASS
  10. PACLITAXEL [Suspect]
     Indication: SCROTAL MASS
  11. PACLITAXEL [Suspect]
     Indication: PULMONARY MASS
  12. PACLITAXEL [Suspect]
     Indication: LYMPHADENOPATHY
  13. DETICENE [Suspect]
     Indication: SCROTAL MASS
  14. DETICENE [Suspect]
     Indication: LYMPHADENOPATHY
  15. DETICENE [Suspect]
     Indication: PULMONARY MASS

REACTIONS (3)
  - Respiratory failure [Fatal]
  - Sarcoma [Fatal]
  - Metastases to lung [Fatal]
